FAERS Safety Report 22621744 (Version 1)
Quarter: 2023Q2

REPORT INFORMATION
  Report Type: Spontaneous
  Country: DE (occurrence: DE)
  Receive Date: 20230620
  Receipt Date: 20230620
  Transmission Date: 20230722
  Serious: Yes (Death, Other)
  Sender: FDA-Public Use
  Company Number: DE-PFIZER-INC-PV202300083837

PATIENT
  Age: 69 Year
  Sex: Male

DRUGS (28)
  1. PEMETREXED [Suspect]
     Active Substance: PEMETREXED
     Indication: Metastatic bronchial carcinoma
     Dosage: UNK, CYCLICAL
     Route: 065
     Dates: start: 200905, end: 200909
  2. PEMETREXED [Suspect]
     Active Substance: PEMETREXED
     Dosage: UNK, UNKNOWN
     Route: 065
     Dates: start: 200910, end: 201001
  3. PEMETREXED [Suspect]
     Active Substance: PEMETREXED
     Dosage: UNK, UNKNOWN
     Dates: start: 201502, end: 201601
  4. PEMETREXED [Suspect]
     Active Substance: PEMETREXED
     Dosage: UNK, UNKNOWN
     Route: 065
     Dates: start: 201906, end: 202003
  5. GEMCITABINE HYDROCHLORIDE [Suspect]
     Active Substance: GEMCITABINE HYDROCHLORIDE
     Indication: Metastatic bronchial carcinoma
     Dosage: UNK UNK, CYCLICAL
     Dates: start: 201008, end: 201101
  6. GEMCITABINE HYDROCHLORIDE [Suspect]
     Active Substance: GEMCITABINE HYDROCHLORIDE
     Dosage: UNK UNK, UNKNOWN
     Route: 065
     Dates: start: 201104, end: 201109
  7. GEMCITABINE HYDROCHLORIDE [Suspect]
     Active Substance: GEMCITABINE HYDROCHLORIDE
     Dosage: UNK, UNKNOWN
     Route: 065
     Dates: start: 201112
  8. GEMCITABINE HYDROCHLORIDE [Suspect]
     Active Substance: GEMCITABINE HYDROCHLORIDE
     Dosage: UNK, UNKNOWN
     Route: 065
     Dates: start: 201302, end: 201307
  9. CARBOPLATIN [Concomitant]
     Active Substance: CARBOPLATIN
     Indication: Metastatic bronchial carcinoma
     Dosage: UNK UNK, CYCLICAL
     Dates: start: 200905, end: 200909
  10. CARBOPLATIN [Concomitant]
     Active Substance: CARBOPLATIN
     Dosage: UNK, CYCLICAL
     Dates: start: 201008, end: 201101
  11. CARBOPLATIN [Concomitant]
     Active Substance: CARBOPLATIN
     Dosage: UNK
     Dates: start: 201112
  12. CARBOPLATIN [Concomitant]
     Active Substance: CARBOPLATIN
     Dosage: UNK
     Dates: start: 201302, end: 201307
  13. CARBOPLATIN [Concomitant]
     Active Substance: CARBOPLATIN
     Dosage: UNK
     Dates: start: 201502
  14. CARBOPLATIN [Concomitant]
     Active Substance: CARBOPLATIN
     Dosage: UNK
     Dates: start: 201906
  15. BEVACIZUMAB [Concomitant]
     Active Substance: BEVACIZUMAB
     Indication: Metastatic bronchial carcinoma
     Dosage: UNK, CYCLICAL
     Dates: start: 200905, end: 200909
  16. BEVACIZUMAB [Concomitant]
     Active Substance: BEVACIZUMAB
     Dosage: UNK
     Dates: start: 201008, end: 201101
  17. BEVACIZUMAB [Concomitant]
     Active Substance: BEVACIZUMAB
     Dosage: UNK
     Dates: start: 201112
  18. BEVACIZUMAB [Concomitant]
     Active Substance: BEVACIZUMAB
     Dosage: UNK
     Dates: start: 201204
  19. BEVACIZUMAB [Concomitant]
     Active Substance: BEVACIZUMAB
     Dosage: UNK
     Dates: start: 201302, end: 201307
  20. ERLOTINIB [Concomitant]
     Active Substance: ERLOTINIB
     Indication: Metastatic bronchial carcinoma
     Dosage: UNK
     Dates: start: 201005
  21. NAVELBINE [Concomitant]
     Active Substance: VINORELBINE TARTRATE
     Indication: Metastatic bronchial carcinoma
     Dosage: UNK
     Dates: start: 201104, end: 201109
  22. EVEROLIMUS [Concomitant]
     Active Substance: EVEROLIMUS
     Indication: Metastatic bronchial carcinoma
     Dosage: 5 MG
     Dates: start: 201310, end: 201401
  23. CRIZOTINIB [Concomitant]
     Active Substance: CRIZOTINIB
     Indication: Metastatic bronchial carcinoma
     Dosage: UNK
     Dates: start: 201402
  24. CRIZOTINIB [Concomitant]
     Active Substance: CRIZOTINIB
     Dosage: UNK
     Dates: start: 201612
  25. CABOZANTINIB [Concomitant]
     Active Substance: CABOZANTINIB
     Indication: Metastatic bronchial carcinoma
     Dosage: UNK
     Dates: start: 201810
  26. CABOZANTINIB [Concomitant]
     Active Substance: CABOZANTINIB
     Dosage: 40 MG, DAILY
     Dates: start: 201912
  27. PEMBROLIZUMAB [Concomitant]
     Active Substance: PEMBROLIZUMAB
     Indication: Metastatic bronchial carcinoma
     Dosage: UNK
     Dates: start: 201906
  28. LORLATINIB [Concomitant]
     Active Substance: LORLATINIB
     Indication: Metastatic bronchial carcinoma
     Dosage: UNK
     Dates: start: 202011

REACTIONS (10)
  - Pneumonia [Fatal]
  - Renal failure [Unknown]
  - Malignant neoplasm progression [Unknown]
  - Lymphoedema [Unknown]
  - Large intestinal stenosis [Unknown]
  - Pleural effusion [Unknown]
  - Carpal tunnel syndrome [Unknown]
  - Ascites [Unknown]
  - Erysipelas [Unknown]
  - Oedema peripheral [Unknown]

NARRATIVE: CASE EVENT DATE: 20100101
